FAERS Safety Report 6337368-5 (Version None)
Quarter: 2009Q3

REPORT INFORMATION
  Report Type: 
  Country: None (occurrence: None)
  Receive Date: 20090901
  Receipt Date: 20090901
  Transmission Date: 20100115
  Serious: Yes (Disabling, Other)
  Sender: FDA-Public Use
  Company Number: None

PATIENT
  Sex: Female
  Weight: 124.2856 kg

DRUGS (1)
  1. OXCARBAZEPINE [Suspect]
     Indication: BIPOLAR DISORDER
     Dosage: 300MG ONCE BID - TWICE BID ORAL
     Route: 048
     Dates: start: 20090731, end: 20090808

REACTIONS (1)
  - ALOPECIA [None]
